FAERS Safety Report 8045489-4 (Version None)
Quarter: 2012Q1

REPORT INFORMATION
  Report Type: 
  Country: None (occurrence: None)
  Receive Date: 20120113
  Receipt Date: 20120105
  Transmission Date: 20120608
  Serious: Yes (Other)
  Sender: FDA-Public Use
  Company Number: US-PFIZER INC-2012003941

PATIENT
  Sex: Female
  Weight: 99.8 kg

DRUGS (4)
  1. PRISTIQ [Suspect]
     Indication: DEPRESSION
     Dosage: 50 MG, 1X/DAY
     Route: 048
     Dates: start: 20090101
  2. MORPHINE [Concomitant]
     Indication: BACK PAIN
     Dosage: UNK
  3. PREMPRO [Suspect]
     Indication: MENOPAUSAL SYMPTOMS
     Dosage: 0.625/2.5 MG, 1X/DAY
     Route: 048
     Dates: start: 20090101
  4. PREMPRO [Suspect]
     Indication: HOT FLUSH

REACTIONS (3)
  - SPINAL OSTEOARTHRITIS [None]
  - ARTHROPATHY [None]
  - JOINT INJURY [None]
